FAERS Safety Report 8319466-X (Version None)
Quarter: 2012Q2

REPORT INFORMATION
  Report Type: 
  Country: None (occurrence: None)
  Receive Date: 20120426
  Receipt Date: 20120426
  Transmission Date: 20120825
  Serious: No
  Sender: FDA-Public Use
  Company Number: None

PATIENT
  Age: 66 Year
  Sex: Male

DRUGS (11)
  1. LISINOPRIL [Concomitant]
  2. GLIPIZIDE [Concomitant]
  3. METFORMIN HCL [Concomitant]
  4. ASPIRIN [Concomitant]
  5. FILGRASTIM [Concomitant]
  6. ATOVAQUONE [Concomitant]
  7. REVLIMID [Suspect]
     Indication: MULTIPLE MYELOMA
     Dosage: 10 MG PO DAILY X 28 DAYS
     Route: 048
     Dates: start: 20120313, end: 20120409
  8. DEXAMETHASONE [Concomitant]
  9. AMLODIPINE [Concomitant]
  10. ACYCLOVIR [Concomitant]
  11. ATENOLOL [Concomitant]

REACTIONS (4)
  - RASH ERYTHEMATOUS [None]
  - RASH MACULO-PAPULAR [None]
  - RASH [None]
  - PRURITUS [None]
